FAERS Safety Report 16971489 (Version 18)
Quarter: 2022Q4

REPORT INFORMATION
  Report Type: Report from Study
  Country: DE (occurrence: DE)
  Receive Date: 20191029
  Receipt Date: 20221229
  Transmission Date: 20230113
  Serious: Yes (Hospitalization, Other)
  Sender: FDA-Public Use
  Company Number: NVSC2019DE017286

PATIENT
  Sex: Female
  Weight: 56 kg

DRUGS (9)
  1. KISQALI [Suspect]
     Active Substance: RIBOCICLIB
     Indication: Breast cancer metastatic
     Dosage: 600 MG, QD
     Route: 048
     Dates: start: 20190919, end: 20191121
  2. LETROZOLE [Suspect]
     Active Substance: LETROZOLE
     Indication: Breast cancer metastatic
     Dosage: 2.5 MG, QD
     Route: 048
     Dates: start: 20190916, end: 20191016
  3. FULVESTRANT [Suspect]
     Active Substance: FULVESTRANT
     Indication: Breast cancer metastatic
     Dosage: 500 MG, QMO (DAILY DOSE)
     Route: 042
     Dates: start: 20200817
  4. FULVESTRANT [Suspect]
     Active Substance: FULVESTRANT
     Dosage: UNK
     Route: 065
     Dates: start: 202011
  5. FULVESTRANT [Suspect]
     Active Substance: FULVESTRANT
     Dosage: UNK
     Route: 065
     Dates: start: 202101
  6. METAMIZOLE [Suspect]
     Active Substance: METAMIZOLE
     Indication: Pain
     Dosage: UNK
     Route: 065
     Dates: start: 20190919, end: 20191223
  7. PALBOCICLIB [Concomitant]
     Active Substance: PALBOCICLIB
     Indication: Breast cancer metastatic
     Dosage: UNK
     Route: 065
     Dates: start: 202101
  8. BEVACIZUMAB [Concomitant]
     Active Substance: BEVACIZUMAB
     Indication: Breast cancer metastatic
     Dosage: UNK (CYCLE LD1)
     Route: 065
     Dates: start: 20210531
  9. PACLITAXEL [Concomitant]
     Active Substance: PACLITAXEL
     Indication: Breast cancer metastatic
     Dosage: UNK (CYCLE LD1)
     Route: 065
     Dates: start: 20210531

REACTIONS (10)
  - Liver function test increased [Not Recovered/Not Resolved]
  - Pyrexia [Recovered/Resolved]
  - Agranulocytosis [Recovered/Resolved]
  - Diverticulitis [Recovered/Resolved]
  - Cholecystitis [Recovered/Resolved]
  - Leukopenia [Recovering/Resolving]
  - Polyneuropathy [Unknown]
  - Pleural effusion [Recovered/Resolved]
  - Cholelithiasis [Recovered/Resolved]
  - Nausea [Unknown]

NARRATIVE: CASE EVENT DATE: 20191004
